FAERS Safety Report 13356448 (Version 2)
Quarter: 2017Q2

REPORT INFORMATION
  Report Type: Spontaneous
  Country: US (occurrence: US)
  Receive Date: 20170321
  Receipt Date: 20170417
  Transmission Date: 20170830
  Serious: Yes (Death, Hospitalization)
  Sender: FDA-Public Use
  Company Number: US-INTERPRAG-PM-OCA2017-00200

PATIENT

DRUGS (18)
  1. CHOLESTYRAMINE. [Concomitant]
     Active Substance: CHOLESTYRAMINE
     Dosage: UNK, BID
     Route: 048
  2. ALDACTONE [Concomitant]
     Active Substance: SPIRONOLACTONE
     Dosage: 200 MG, QD
     Dates: start: 20161209
  3. VITAMIN D3 [Concomitant]
     Active Substance: CHOLECALCIFEROL
     Dosage: 10000 U, ONCE PER WEEK
  4. DIPHENHYDRAMINE. [Concomitant]
     Active Substance: DIPHENHYDRAMINE
  5. MULTIVITAMINS, PLAIN [Concomitant]
     Active Substance: VITAMINS
     Dosage: 1 TABLET, QD
     Route: 048
  6. URSODIOL. [Concomitant]
     Active Substance: URSODIOL
     Dosage: 250 MG, TID
     Route: 048
  7. VITAMIN B12 + FOLIC ACID [Concomitant]
     Dosage: 500/400 ?G, UNK
  8. OCALIVA [Suspect]
     Active Substance: OBETICHOLIC ACID
     Indication: BILIARY CIRRHOSIS PRIMARY
     Dosage: 5 MG, QD
     Route: 048
  9. LIDOCAINE VISCOUS [Concomitant]
     Active Substance: LIDOCAINE HYDROCHLORIDE
     Dosage: 1000 ML, QID
     Route: 048
  10. MAALOX ANTACID [Concomitant]
     Active Substance: ALUMINUM HYDROXIDE\DIMETHICONE\MAGNESIUM HYDROXIDE
  11. FEXOFENADINE [Concomitant]
     Active Substance: FEXOFENADINE\FEXOFENADINE HYDROCHLORIDE
     Dosage: 180 MG, QD
     Route: 048
  12. METFORMIN [Concomitant]
     Active Substance: METFORMIN HYDROCHLORIDE
     Dosage: 1000 MG, QD
     Route: 048
  13. POTASSIUM CHLORIDE. [Concomitant]
     Active Substance: POTASSIUM CHLORIDE
  14. ALDACTONE [Concomitant]
     Active Substance: SPIRONOLACTONE
     Dosage: 100 MG, QD
     Route: 048
     Dates: end: 20161209
  15. BIOTIN [Concomitant]
     Active Substance: BIOTIN
     Dosage: 10 MG, QD
     Route: 048
  16. CYPROHEPTADINE. [Concomitant]
     Active Substance: CYPROHEPTADINE
     Dosage: 4 MG, QHS
     Route: 048
  17. GABAPENTIN. [Concomitant]
     Active Substance: GABAPENTIN
     Dosage: 300 MG, BID
     Route: 048
  18. LASIX [Concomitant]
     Active Substance: FUROSEMIDE
     Dosage: 40 MG, QD
     Route: 048

REACTIONS (12)
  - Incontinence [Unknown]
  - Temperature intolerance [Unknown]
  - Weight decreased [Unknown]
  - Depression [Unknown]
  - Dizziness [Unknown]
  - Hepatic cirrhosis [Fatal]
  - Decreased appetite [Unknown]
  - Eructation [Unknown]
  - Anxiety [Unknown]
  - Heart rate irregular [Unknown]
  - Fall [Unknown]
  - Insomnia [Unknown]
